FAERS Safety Report 8905680 (Version 2)
Quarter: 2012Q4

REPORT INFORMATION
  Report Type: 
  Country: IT (occurrence: IT)
  Receive Date: 20121113
  Receipt Date: 20121127
  Transmission Date: 20130627
  Serious: Yes (Hospitalization)
  Sender: FDA-Public Use
  Company Number: IT-B.I. PHARMACEUTICALS,INC./RIDGEFIELD-2012-IT-00349IT

PATIENT
  Age: 35 Year
  Sex: Female

DRUGS (12)
  1. CATAPRESAN [Suspect]
     Dosage: 300 mcg
     Dates: start: 20121017, end: 20121022
  2. RAMIPRIL [Suspect]
     Dosage: 5 mg
     Route: 048
     Dates: start: 20121017, end: 20121022
  3. GLUCOPHAGE [Suspect]
     Dosage: 1500 mg
     Route: 048
     Dates: start: 20120309, end: 20121022
  4. LOBIDIUR [Suspect]
     Dosage: 5 mg
     Dates: start: 20121017, end: 20121022
  5. NORVASC [Concomitant]
     Route: 048
  6. FERRO-GRAD [Concomitant]
     Route: 048
  7. CATAPRESAN TTS [Concomitant]
     Dosage: 5 mg
     Route: 062
  8. PLASIL [Concomitant]
     Dosage: 20 mg
  9. LUCEN [Concomitant]
     Dosage: 20 mg
     Route: 048
  10. MINULET [Concomitant]
     Dosage: Strength : 0.075 mg+ 0.03 mg
     Route: 048
  11. ACTOS [Concomitant]
     Dosage: 30 mg
     Route: 048
  12. ALLOPURINOLO [Concomitant]
     Dosage: 150 mg
     Route: 048

REACTIONS (1)
  - Renal failure acute [Recovered/Resolved]
